FAERS Safety Report 7833320-9 (Version None)
Quarter: 2011Q4

REPORT INFORMATION
  Report Type: 
  Country: None (occurrence: None)
  Receive Date: 20111024
  Receipt Date: 20111011
  Transmission Date: 20120403
  Serious: Yes (Other)
  Sender: FDA-Public Use
  Company Number: CA-NAPPMUNDI-GBR-2011-0008668

PATIENT
  Age: 66 Year
  Sex: Female

DRUGS (14)
  1. TRAMADOL HCL [Interacting]
     Dosage: 37.5 MG, TID
     Route: 065
  2. DOMPERIDONE [Concomitant]
     Dosage: 10 MG, QID
     Route: 065
  3. IMIPRAMINE [Suspect]
     Indication: PRODUCT USED FOR UNKNOWN INDICATION
     Route: 065
  4. TRAZODONE HYDROCHLORIDE [Interacting]
     Indication: PRODUCT USED FOR UNKNOWN INDICATION
     Dosage: 50 MG, DAILY
     Route: 065
  5. HALOPERIDOL [Concomitant]
     Indication: PARANOIA
     Dosage: 2 MG, BID
     Route: 065
  6. AMLODIPINE [Concomitant]
     Dosage: 10 MG, DAILY
     Route: 065
  7. WARFARIN SODIUM [Concomitant]
     Dosage: 2 MG, DAILY
     Route: 065
  8. PAROXETINE HCL [Suspect]
     Indication: PRODUCT USED FOR UNKNOWN INDICATION
     Dosage: 20 MG, DAILY
     Route: 065
  9. FUROSEMIDE [Concomitant]
     Dosage: 40 MG, BID
     Route: 065
  10. MOXIFLOXACIN [Concomitant]
     Indication: PNEUMONIA
     Dosage: 400 MG, DAILY
     Route: 065
  11. MIRTAZAPINE [Suspect]
     Indication: PARANOIA
     Dosage: 15 MG, DAILY
     Route: 065
  12. ATORVASTATIN [Concomitant]
     Dosage: 20 MG, DAILY
     Route: 065
  13. MELOXICAM [Concomitant]
     Dosage: 15 MG, DAILY
     Route: 065
  14. OXYCODONE HYDROCHLORIDE [Suspect]
     Indication: PRODUCT USED FOR UNKNOWN INDICATION
     Dosage: 5 MG, BID
     Route: 065

REACTIONS (11)
  - CIRCADIAN RHYTHM SLEEP DISORDER [None]
  - CONFUSIONAL STATE [None]
  - TREMOR [None]
  - BLOOD CREATINE PHOSPHOKINASE INCREASED [None]
  - DRUG INTERACTION [None]
  - BLOOD UREA INCREASED [None]
  - BLOOD CREATININE INCREASED [None]
  - REFLEXES ABNORMAL [None]
  - HYPOPHAGIA [None]
  - MOBILITY DECREASED [None]
  - WHITE BLOOD CELL COUNT INCREASED [None]
